FAERS Safety Report 4294173-1 (Version None)
Quarter: 2004Q1

REPORT INFORMATION
  Report Type: 
  Country: None (occurrence: None)
  Receive Date: 20040213
  Receipt Date: 20040203
  Transmission Date: 20041129
  Serious: Yes (Hospitalization)
  Sender: FDA-Public Use
  Company Number: FR-BRISTOL-MYERS SQUIBB COMPANY-12494746

PATIENT
  Age: 9 Month
  Sex: Male
  Weight: 10 kg

DRUGS (3)
  1. AMIKACIN [Suspect]
     Indication: LUNG DISORDER
     Route: 042
     Dates: start: 19960519, end: 19960501
  2. ROCEPHIN [Suspect]
     Indication: LUNG DISORDER
     Dosage: DAILY DOSE WAS DECREASED TO 50 MG ON 22-MAY-1996
     Route: 042
     Dates: start: 19960519, end: 19960527
  3. CALCIUM [Concomitant]
     Route: 051

REACTIONS (2)
  - MYOCLONUS [None]
  - NYSTAGMUS [None]
